FAERS Safety Report 18618284 (Version 1)
Quarter: 2020Q4

REPORT INFORMATION
  Report Type: Spontaneous
  Country: US (occurrence: US)
  Receive Date: 20201215
  Receipt Date: 20201215
  Transmission Date: 20210114
  Serious: No
  Sender: FDA-Public Use
  Company Number: None

PATIENT
  Age: 55 Year
  Sex: Female
  Weight: 70.83 kg

DRUGS (8)
  1. VITAMIN D 10 MCG, ORAL [Concomitant]
  2. ADVIL, ORAL [Concomitant]
  3. VENLAFAXINE HCL ER 150 MG, ORAL [Concomitant]
  4. LETROZOLE 2.5 MG, ORAL [Concomitant]
  5. VITAMIN C ER 500 MG, ORAL [Concomitant]
  6. PALONOSETRON 0.25 MG/5 ML, IV [Concomitant]
  7. MULTIVITAMIN, ORAL [Concomitant]
  8. CAPECITABINE. [Suspect]
     Active Substance: CAPECITABINE
     Indication: BREAST CANCER
     Dosage: ?          OTHER FREQUENCY:2 WEEKS ON;?
     Route: 048
     Dates: start: 20201201

REACTIONS (1)
  - Nausea [None]

NARRATIVE: CASE EVENT DATE: 20201215
